FAERS Safety Report 20063860 (Version 1)
Quarter: 2021Q4

REPORT INFORMATION
  Report Type: Spontaneous
  Country: US (occurrence: None)
  Receive Date: 20211111
  Receipt Date: 20211111
  Transmission Date: 20220303
  Serious: Yes (Other)
  Sender: FDA-Public Use
  Company Number: None

PATIENT
  Age: 72 Year
  Sex: Female
  Weight: 56.25 kg

DRUGS (19)
  1. AXICABTAGENE CILOLEUCEL [Suspect]
     Active Substance: AXICABTAGENE CILOLEUCEL
     Indication: Diffuse large B-cell lymphoma
     Dosage: OTHER FREQUENCY : ONCE;?
     Route: 041
  2. ALLOPURINOL [Concomitant]
     Active Substance: ALLOPURINOL
     Dates: start: 20210831, end: 20210902
  3. ALPRAZOLAM [Concomitant]
     Active Substance: ALPRAZOLAM
  4. FIORICET [Concomitant]
     Active Substance: ACETAMINOPHEN\BUTALBITAL\CAFFEINE
  5. CETIRIZINE [Concomitant]
     Active Substance: CETIRIZINE HYDROCHLORIDE
     Dates: start: 20210830, end: 20210912
  6. CHLORHEXIDINE [Concomitant]
     Active Substance: CHLORHEXIDINE
     Dates: start: 20210830, end: 20210912
  7. CIPROFLOXACIN [Concomitant]
     Active Substance: CIPROFLOXACIN
     Dates: start: 20210830, end: 20210902
  8. ENOXAPARIN [Concomitant]
     Active Substance: ENOXAPARIN
     Dates: start: 20210830, end: 20210913
  9. FLUCONAZOLE [Concomitant]
     Active Substance: FLUCONAZOLE
     Dates: start: 20210830, end: 20210913
  10. LOSARTAN [Concomitant]
     Active Substance: LOSARTAN
     Dates: start: 20210830, end: 20210913
  11. MAGNESIUM OXIDE [Concomitant]
     Active Substance: MAGNESIUM OXIDE
     Dates: start: 20210830, end: 20210904
  12. MAGNESIUM SULFATE [Concomitant]
     Active Substance: MAGNESIUM SULFATE
  13. ONDANSETRON [Concomitant]
     Active Substance: ONDANSETRON
  14. POTASSIUM CHLORIDE [Concomitant]
     Active Substance: POTASSIUM CHLORIDE
     Dates: start: 20210830, end: 20210905
  15. PROCHLORPERAZINE [Concomitant]
     Active Substance: PROCHLORPERAZINE
     Dates: start: 20210830, end: 20210913
  16. SODIUM PHOSPHATE [Concomitant]
     Active Substance: SODIUM PHOSPHATE
  17. supersaturated calcium phosphate rinse [Concomitant]
     Dates: start: 20210830, end: 20210913
  18. URSODIOL [Concomitant]
     Active Substance: URSODIOL
     Dates: start: 20210830, end: 20210913
  19. VALACYCLOVIR [Concomitant]
     Active Substance: VALACYCLOVIR HYDROCHLORIDE
     Dates: start: 20210830, end: 20210913

REACTIONS (1)
  - Cytokine release syndrome [None]

NARRATIVE: CASE EVENT DATE: 20210831
